FAERS Safety Report 7490766-9 (Version None)
Quarter: 2011Q2

REPORT INFORMATION
  Report Type: 
  Country: None (occurrence: None)
  Receive Date: 20110519
  Receipt Date: 20091029
  Transmission Date: 20111010
  Serious: Yes (Hospitalization, Other)
  Sender: FDA-Public Use
  Company Number: US-BAYER-200937383NA

PATIENT
  Age: 61 Year
  Sex: Male
  Weight: 108.2 kg

DRUGS (20)
  1. ZOCOR [Concomitant]
     Dosage: 40 MG, QD
     Route: 048
  2. NITROGLYCERIN [Concomitant]
     Dosage: 10 MCG/MIN
     Route: 042
  3. VERSED [Concomitant]
     Dosage: 15 MG, UNK
     Route: 042
  4. TRASYLOL [Suspect]
     Indication: CORONARY ARTERY BYPASS
     Dosage: 1ML INITIAL TEST DOSE, 200ML LOADING DOSE FOLLOWED BY 50ML/HOUR INFUSION
     Route: 042
     Dates: start: 20030327, end: 20030327
  5. HEPARIN [Concomitant]
     Dosage: 30000 U, UNK
     Route: 042
  6. PROPOFOL [Concomitant]
     Route: 042
  7. LOPRESSOR [Concomitant]
     Dosage: 50 MG, BID
     Route: 048
  8. CARDIZEM [Concomitant]
     Dosage: 2MG/HR
     Route: 042
  9. SUFENTA PRESERVATIVE FREE [Concomitant]
     Dosage: 160 MG, UNK
     Route: 042
  10. PROTAMINE SULFATE [Concomitant]
     Dosage: 500 MG, UNK
     Route: 042
  11. VANCOMYCIN [Concomitant]
     Dosage: 1 G, UNK
     Route: 042
  12. ALBUMIN (HUMAN) [Concomitant]
     Dosage: 250 ML, UNK
     Route: 042
  13. LEVOPHED [Concomitant]
     Dosage: TITRATED
     Route: 042
  14. REGULAR INSULIN [Concomitant]
     Dosage: 20 U, UNK
     Route: 042
  15. SOLU-MEDROL [Concomitant]
     Dosage: 1 MG, UNK
     Route: 042
  16. ACETYLSALICYLIC ACID SRT [Concomitant]
     Dosage: 1 TABLET PER DAY
     Route: 048
  17. CEFAZOLIN [Concomitant]
     Dosage: 2 G, UNK
     Route: 042
  18. LASIX [Concomitant]
     Dosage: 60 MG, UNK
     Route: 042
     Dates: start: 20030327, end: 20030327
  19. PRIMACOR [Concomitant]
     Dosage: 3 MG, IV BOLUS
  20. CARDIZEM CD [Concomitant]
     Dosage: 40 MG, QD
     Route: 048

REACTIONS (4)
  - UNEVALUABLE EVENT [None]
  - RENAL FAILURE [None]
  - PAIN [None]
  - INJURY [None]
